FAERS Safety Report 8854276 (Version 3)
Quarter: 2013Q1

REPORT INFORMATION
  Report Type: Spontaneous
  Country: US (occurrence: US)
  Receive Date: 20121023
  Receipt Date: 20130114
  Transmission Date: 20140127
  Serious: Yes (Other)
  Sender: FDA-Public Use
  Company Number: US-GILEAD-2012-0063392

PATIENT
  Sex: Female

DRUGS (2)
  1. LETAIRIS [Suspect]
     Indication: PULMONARY HYPERTENSION
     Dosage: 5 MG, QD
     Route: 048
     Dates: start: 20120912
  2. LETAIRIS [Suspect]
     Indication: COLLAGEN-VASCULAR DISEASE

REACTIONS (8)
  - Rheumatoid arthritis [Unknown]
  - Insomnia [Unknown]
  - Anxiety [Unknown]
  - Flushing [Unknown]
  - Palpitations [Unknown]
  - Swelling [Unknown]
  - Rhinorrhoea [Unknown]
  - Oedema [Unknown]
